FAERS Safety Report 13361432 (Version 1)
Quarter: 2017Q1

REPORT INFORMATION
  Report Type: Spontaneous
  Country: RU (occurrence: RU)
  Receive Date: 20170323
  Receipt Date: 20170323
  Transmission Date: 20170429
  Serious: Yes (Death, Other)
  Sender: FDA-Public Use
  Company Number: RU-ASTRAZENECA-2017SE28383

PATIENT
  Age: 78 Year
  Sex: Female
  Weight: 100 kg

DRUGS (2)
  1. BRILINTA [Suspect]
     Active Substance: TICAGRELOR
     Indication: ACUTE CORONARY SYNDROME
     Route: 048
     Dates: start: 2017
  2. HEPARIN SODIUM. [Concomitant]
     Active Substance: HEPARIN SODIUM
     Dosage: 20000 U DURING PCY
     Route: 065

REACTIONS (4)
  - Retroperitoneal haematoma [Fatal]
  - Erythema multiforme [Unknown]
  - Haemorrhage [Fatal]
  - Shock haemorrhagic [Fatal]
